FAERS Safety Report 5868326-2 (Version None)
Quarter: 2008Q3

REPORT INFORMATION
  Report Type: 
  Country: None (occurrence: None)
  Receive Date: 20080903
  Receipt Date: 20080826
  Transmission Date: 20090109
  Serious: Yes (Hospitalization, Other)
  Sender: FDA-Public Use
  Company Number: FR-BRISTOL-MYERS SQUIBB COMPANY-14321673

PATIENT
  Age: 47 Year
  Sex: Male

DRUGS (4)
  1. GLUCOVANCE [Suspect]
  2. ALCOHOL [Suspect]
  3. ZANIDIP [Concomitant]
  4. CRESTOR [Concomitant]

REACTIONS (4)
  - HYPOGLYCAEMIA [None]
  - INTENTIONAL OVERDOSE [None]
  - LACTIC ACIDOSIS [None]
  - RENAL FAILURE ACUTE [None]
